FAERS Safety Report 20348269 (Version 2)
Quarter: 2022Q1

REPORT INFORMATION
  Report Type: Spontaneous
  Country: NL (occurrence: NL)
  Receive Date: 20220119
  Receipt Date: 20220128
  Transmission Date: 20220423
  Serious: Yes (Hospitalization)
  Sender: FDA-Public Use
  Company Number: NL-LRB-00735016

PATIENT
  Sex: Male

DRUGS (7)
  1. OLANZAPINE [Suspect]
     Active Substance: OLANZAPINE
     Indication: Nausea
     Dosage: 5 MILLIGRAM, BID, 2 X A DAY 1 PIECE
     Route: 065
     Dates: start: 20211215, end: 20211221
  2. CAPECITABINE [Concomitant]
     Active Substance: CAPECITABINE
     Indication: Product used for unknown indication
     Dosage: FILM-COATED TABLET, 500 MG (MILLIGRAMS)
     Route: 065
  3. PERINDOPRIL TABLET 4MG (ERBUMINE) / Brand name not specifiedPERINDO... [Concomitant]
     Indication: Product used for unknown indication
     Dosage: TABLET, 4 MG (MILLIGRAM) ()
     Route: 065
  4. SPIRONOLACTON TABLET 12,5MG / Brand name not specifiedSPIRONOLACTON... [Concomitant]
     Indication: Product used for unknown indication
     Dosage: TABLET, 12,5 MG (MILLIGRAM) ()
     Route: 065
  5. RIVAROXABAN TABLET 20MG / Brand name not specifiedRIVAROXABAN TABLE... [Concomitant]
     Indication: Product used for unknown indication
     Dosage: TABLET, 20 MG (MILLIGRAM) ()
     Route: 065
  6. METOPROLOL TABLET MGA  50MG (SUCCINAAT) / Brand name not specifiedM... [Concomitant]
     Indication: Product used for unknown indication
     Dosage: MODIFIED-RELEASE TABLET, 50 MG (MILLIGRAMS)
     Route: 065
  7. ROSUVASTATINE TABLET 20MG / Brand name not specifiedROSUVASTATINE T... [Concomitant]
     Indication: Product used for unknown indication
     Dosage: TABLET, 20 MG (MILLIGRAM) ()
     Route: 065

REACTIONS (3)
  - Renal impairment [Recovered/Resolved]
  - Delirium [Recovered/Resolved]
  - Urinary retention [Recovered/Resolved]
